FAERS Safety Report 8405160-3 (Version None)
Quarter: 2012Q2

REPORT INFORMATION
  Report Type: 
  Country: None (occurrence: None)
  Receive Date: 20120602
  Receipt Date: 20120521
  Transmission Date: 20120825
  Serious: Yes (Other)
  Sender: FDA-Public Use
  Company Number: IT-TEVA-340247ISR

PATIENT
  Sex: Male

DRUGS (1)
  1. GEMCITABINE [Suspect]
     Indication: PANCREATIC CARCINOMA
     Dosage: 1000 MILLIGRAM;
     Route: 042
     Dates: start: 20120424, end: 20120424

REACTIONS (4)
  - TACHYCARDIA [None]
  - RECTAL TENESMUS [None]
  - SUPRAVENTRICULAR EXTRASYSTOLES [None]
  - BLADDER SPASM [None]
